FAERS Safety Report 6337818-4 (Version None)
Quarter: 2009Q3

REPORT INFORMATION
  Report Type: 
  Country: None (occurrence: None)
  Receive Date: 20090902
  Receipt Date: 20090828
  Transmission Date: 20100115
  Serious: Yes (Other)
  Sender: FDA-Public Use
  Company Number: A0804846A

PATIENT
  Sex: Male

DRUGS (5)
  1. LAMOTRIGINE [Suspect]
     Indication: EPILEPSY
     Dosage: 300MG THREE TIMES PER DAY
     Route: 048
  2. KLONOPIN [Concomitant]
  3. PHENOBARBITAL [Concomitant]
  4. SIMVASTATIN [Concomitant]
  5. PROPRANOLOL [Concomitant]

REACTIONS (3)
  - AURA [None]
  - BLOOD TEST ABNORMAL [None]
  - CONVULSION [None]
